FAERS Safety Report 13125422 (Version 1)
Quarter: 2017Q1

REPORT INFORMATION
  Report Type: Spontaneous
  Country: US (occurrence: US)
  Receive Date: 20170118
  Receipt Date: 20170118
  Transmission Date: 20170428
  Serious: No
  Sender: FDA-Public Use
  Company Number: US-PFIZER INC-2017020216

PATIENT
  Age: 52 Year
  Sex: Female

DRUGS (1)
  1. NEURONTIN [Suspect]
     Active Substance: GABAPENTIN
     Indication: FIBROMYALGIA
     Dosage: 1200 MG, DAILY (1 CAPSULE IN 5:30 AM, 1200 PM AND 2 CAPSULE AT BEDTIME)
     Route: 048

REACTIONS (3)
  - Product use issue [Unknown]
  - Pain [Unknown]
  - Condition aggravated [Unknown]
